FAERS Safety Report 7912996-1 (Version None)
Quarter: 2011Q4

REPORT INFORMATION
  Report Type: 
  Country: None (occurrence: None)
  Receive Date: 20111114
  Receipt Date: 20111108
  Transmission Date: 20120403
  Serious: Yes (Hospitalization)
  Sender: FDA-Public Use
  Company Number: JP-CEPHALON-2011003101

PATIENT
  Sex: Male
  Weight: 51 kg

DRUGS (13)
  1. POLAPREZINC [Concomitant]
  2. BENDAMUSTINE HCL [Suspect]
     Indication: LYMPHOPLASMACYTOID LYMPHOMA/IMMUNOCYTOMA
     Route: 042
     Dates: start: 20110308, end: 20110309
  3. RITUXIMAB [Suspect]
     Dates: start: 20100101, end: 20100201
  4. ACYCLOVIR [Concomitant]
     Dates: start: 20110317
  5. SULFAMETHOXAZOLE AND TRIMETHOPRIM [Concomitant]
  6. FUROSEMIDE [Concomitant]
  7. BIFIDOBACTERIUM BIFIDUM [Concomitant]
  8. BENDAMUSTINE HCL [Suspect]
     Route: 042
     Dates: start: 20110407, end: 20110408
  9. LANSOPRAZOLE [Concomitant]
  10. ZOLPIDEM TARTRATE [Concomitant]
  11. SODIUM BICARBONATE [Concomitant]
  12. GRANISETRON HCL [Concomitant]
  13. MAGNESIUM OXIDE [Concomitant]

REACTIONS (1)
  - ANAEMIA HAEMOLYTIC AUTOIMMUNE [None]
